FAERS Safety Report 8784879 (Version 1)
Quarter: 2012Q4

REPORT INFORMATION
  Report Type: Spontaneous
  Country: US (occurrence: None)
  Receive Date: 20120831
  Receipt Date: 20120831
  Transmission Date: 20130627
  Serious: Yes (Life-Threatening, Other)
  Sender: FDA-Public Use
  Company Number: 2012P1055085

PATIENT
  Age: 22 Year
  Sex: Female

DRUGS (1)
  1. FENTANYL [Suspect]
     Indication: EUPHORIA
     Route: 048

REACTIONS (6)
  - Intentional drug misuse [None]
  - Loss of consciousness [None]
  - Cyanosis [None]
  - Respiratory depression [None]
  - Drug screen positive [None]
  - Overdose [None]
